FAERS Safety Report 16874838 (Version 1)
Quarter: 2019Q4

REPORT INFORMATION
  Report Type: Spontaneous
  Country: US (occurrence: US)
  Receive Date: 20191001
  Receipt Date: 20191001
  Transmission Date: 20200122
  Serious: Yes (Other)
  Sender: FDA-Public Use
  Company Number: US-ELI_LILLY_AND_COMPANY-US201909010944

PATIENT
  Sex: Female

DRUGS (4)
  1. GABAPENTIN. [Concomitant]
     Active Substance: GABAPENTIN
     Indication: PRODUCT USED FOR UNKNOWN INDICATION
     Dosage: UNK
     Dates: start: 2016
  2. HUMALOG [Suspect]
     Active Substance: INSULIN LISPRO
     Dosage: (90-120 U), TID
     Route: 058
  3. LANTUS [Concomitant]
     Active Substance: INSULIN GLARGINE
     Indication: PRODUCT USED FOR UNKNOWN INDICATION
  4. HUMALOG [Suspect]
     Active Substance: INSULIN LISPRO
     Indication: TYPE 2 DIABETES MELLITUS
     Dosage: 20 U, TID
     Route: 058
     Dates: start: 2016

REACTIONS (5)
  - Incorrect dose administered [Not Recovered/Not Resolved]
  - Product dose omission [Not Recovered/Not Resolved]
  - Blood glucose increased [Recovered/Resolved]
  - Rubber sensitivity [Not Recovered/Not Resolved]
  - Blood glucose increased [Not Recovered/Not Resolved]
